FAERS Safety Report 6209092-0 (Version None)
Quarter: 2009Q2

REPORT INFORMATION
  Report Type: 
  Country: None (occurrence: None)
  Receive Date: 20090522
  Receipt Date: 20090209
  Transmission Date: 20091009
  Serious: No
  Sender: FDA-Public Use
  Company Number: 8042797

PATIENT
  Age: 43 Year
  Sex: Female

DRUGS (8)
  1. CIMZIA [Suspect]
     Indication: CROHN'S DISEASE
     Dosage: 400 MG /M SC
     Route: 058
     Dates: start: 20081119
  2. VERMOX [Concomitant]
  3. SYNTHROID [Concomitant]
  4. FLAGYL [Concomitant]
  5. NYSTATIN [Concomitant]
  6. PREMARIN [Concomitant]
  7. NEXIUM [Concomitant]
  8. VITAMIN B-12 [Concomitant]

REACTIONS (1)
  - INFLUENZA [None]
